FAERS Safety Report 6724097-9 (Version None)
Quarter: 2010Q2

REPORT INFORMATION
  Report Type: 
  Country: None (occurrence: None)
  Receive Date: 20100513
  Receipt Date: 20100505
  Transmission Date: 20101027
  Serious: Yes (Hospitalization)
  Sender: FDA-Public Use
  Company Number: FR-ROCHE-693947

PATIENT
  Sex: Male
  Weight: 70 kg

DRUGS (15)
  1. AVASTIN [Suspect]
     Indication: COLORECTAL CANCER
     Dosage: THE PATIENT RECEIVED 12 CYCLES OF AVASTIN.
     Route: 042
     Dates: start: 20090120, end: 20090730
  2. AVASTIN [Suspect]
     Dosage: THE PATIENT RECEIVED FIVE INJECTIONS. MAINTENANCE TREATMENT.
     Route: 042
     Dates: start: 20090909, end: 20091202
  3. AVASTIN [Suspect]
     Route: 042
     Dates: start: 20100113, end: 20100316
  4. FOLFIRI REGIMEN [Concomitant]
     Indication: COLORECTAL CANCER
     Dosage: THE PATIENT RECEIVED 12 CYCLES.
     Dates: start: 20090120, end: 20090730
  5. FOLFIRI REGIMEN [Concomitant]
     Dates: start: 20100113
  6. FOLFIRI REGIMEN [Concomitant]
     Dates: start: 20100316
  7. FLUOROURACIL [Concomitant]
     Route: 042
     Dates: start: 20090101
  8. ACETAMINOPHEN [Concomitant]
     Dosage: DOSAGE: 2 TO 6 DOSES DAILY.
     Dates: start: 20090101
  9. LYSANXIA [Concomitant]
     Dosage: DOSAGE: 1 DOSE DAILY. DRUG: LYSANXIA 10 MG.
     Dates: start: 20090101
  10. IBUPROFENE [Concomitant]
     Indication: HYPERTENSION
     Dosage: OTHER INDICATION: MIGRAINE. DOSAGE: 1 TO 2 DOSES WEEKLY.
     Dates: start: 20091001
  11. LACTULOSE [Concomitant]
  12. SINTROM [Concomitant]
     Dates: start: 20090601
  13. NEUPOGEN [Concomitant]
     Indication: NEUTROPENIA
     Dosage: DRUG REPORTED AS NEUPOGEN 30
     Dates: start: 20090101
  14. XELODA [Concomitant]
     Indication: COLORECTAL CANCER
     Dosage: MAINTENANCE TREATMENT.
     Route: 048
     Dates: start: 20090909, end: 20091202
  15. IRINOTECAN [Concomitant]
     Route: 042
     Dates: start: 20090101

REACTIONS (3)
  - COLITIS ISCHAEMIC [None]
  - MALIGNANT NEOPLASM PROGRESSION [None]
  - NEUTROPENIA [None]
